FAERS Safety Report 14734334 (Version 1)
Quarter: 2018Q2

REPORT INFORMATION
  Report Type: Spontaneous
  Country: US (occurrence: US)
  Receive Date: 20180403
  Receipt Date: 20180403
  Transmission Date: 20180711
  Serious: Yes (Hospitalization)
  Sender: FDA-Public Use
  Company Number: None

PATIENT
  Age: 60 Year
  Sex: Female
  Weight: 125.28 kg

DRUGS (3)
  1. LENALIDOMIDE (CC-5013) [Suspect]
     Active Substance: LENALIDOMIDE
     Dates: end: 20180326
  2. DEXAMETHASONE. [Suspect]
     Active Substance: DEXAMETHASONE
     Dates: end: 20180324
  3. VELCADE [Suspect]
     Active Substance: BORTEZOMIB
     Dates: end: 20180323

REACTIONS (2)
  - Pathological fracture [None]
  - Clavicle fracture [None]

NARRATIVE: CASE EVENT DATE: 20180315
